FAERS Safety Report 9605068 (Version 1)
Quarter: 2013Q4

REPORT INFORMATION
  Report Type: Spontaneous
  Country: US (occurrence: US)
  Receive Date: 20131008
  Receipt Date: 20131008
  Transmission Date: 20140711
  Serious: Yes (Hospitalization, Other)
  Sender: FDA-Public Use
  Company Number: US-PFIZER INC-2013284810

PATIENT
  Age: 13 Year
  Sex: Male
  Weight: 55 kg

DRUGS (30)
  1. CEFTRIAXONE [Suspect]
     Indication: ENTEROBACTER INFECTION
     Dosage: 2 G, 2X/DAY
     Route: 042
  2. CEFTRIAXONE [Suspect]
     Indication: ENTEROCOCCAL INFECTION
  3. CEFTRIAXONE [Suspect]
     Indication: CORYNEBACTERIUM INFECTION
  4. CEFTRIAXONE [Suspect]
     Indication: STREPTOCOCCAL INFECTION
  5. CEFTRIAXONE [Suspect]
     Indication: STAPHYLOCOCCAL INFECTION
  6. VANCOMYCIN HCL [Suspect]
     Indication: ENTEROBACTER INFECTION
     Dosage: 875 MG, 2X/DAY
     Route: 042
  7. VANCOMYCIN HCL [Suspect]
     Indication: ENTEROCOCCAL INFECTION
  8. VANCOMYCIN HCL [Suspect]
     Indication: CORYNEBACTERIUM INFECTION
  9. VANCOMYCIN HCL [Suspect]
     Indication: STREPTOCOCCAL INFECTION
  10. VANCOMYCIN HCL [Suspect]
     Indication: STAPHYLOCOCCAL INFECTION
  11. METRONIDAZOLE [Suspect]
     Indication: ENTEROBACTER INFECTION
     Dosage: 500 MG, 4X/DAY
     Route: 042
  12. METRONIDAZOLE [Suspect]
     Indication: ENTEROCOCCAL INFECTION
  13. METRONIDAZOLE [Suspect]
     Indication: CORYNEBACTERIUM INFECTION
  14. METRONIDAZOLE [Suspect]
     Indication: STREPTOCOCCAL INFECTION
  15. METRONIDAZOLE [Suspect]
     Indication: STAPHYLOCOCCAL INFECTION
  16. GENTAMICIN [Suspect]
     Indication: STAPHYLOCOCCAL INFECTION
     Dosage: 140 MG, 3X/DAY
     Route: 042
  17. GENTAMICIN [Suspect]
     Indication: ENTEROBACTER INFECTION
  18. GENTAMICIN [Suspect]
     Indication: ENTEROCOCCAL INFECTION
  19. GENTAMICIN [Suspect]
     Indication: CORYNEBACTERIUM INFECTION
  20. GENTAMICIN [Suspect]
     Indication: STREPTOCOCCAL INFECTION
  21. AMPICILLIN [Suspect]
     Indication: ENTEROBACTER INFECTION
     Dosage: UNK
  22. AMPICILLIN [Suspect]
     Indication: ENTEROCOCCAL INFECTION
  23. AMPICILLIN [Suspect]
     Indication: CORYNEBACTERIUM INFECTION
  24. AMPICILLIN [Suspect]
     Indication: STREPTOCOCCAL INFECTION
  25. AMPICILLIN [Suspect]
     Indication: STAPHYLOCOCCAL INFECTION
  26. NAFCILLIN [Suspect]
     Indication: ENTEROBACTER INFECTION
     Dosage: UNK
  27. NAFCILLIN [Suspect]
     Indication: ENTEROCOCCAL INFECTION
  28. NAFCILLIN [Suspect]
     Indication: CORYNEBACTERIUM INFECTION
  29. NAFCILLIN [Suspect]
     Indication: STREPTOCOCCAL INFECTION
  30. NAFCILLIN [Suspect]
     Indication: STAPHYLOCOCCAL INFECTION

REACTIONS (3)
  - Pancreatitis [Recovered/Resolved]
  - Renal failure [Recovered/Resolved]
  - Vomiting [Recovered/Resolved]
